FAERS Safety Report 8111381-X (Version None)
Quarter: 2012Q1

REPORT INFORMATION
  Report Type: 
  Country: None (occurrence: None)
  Receive Date: 20120203
  Receipt Date: 20111020
  Transmission Date: 20120608
  Serious: No
  Sender: FDA-Public Use
  Company Number: US-GLAXOSMITHKLINE-A0949900A

PATIENT
  Age: 66 Year
  Sex: Female

DRUGS (2)
  1. LAMICTAL [Suspect]
     Indication: BIPOLAR DISORDER
     Dosage: 200MG PER DAY
     Route: 048
     Dates: start: 20050101
  2. VITAMIN TAB [Concomitant]

REACTIONS (8)
  - PRURITUS [None]
  - RASH [None]
  - DERMATITIS [None]
  - THERMAL BURN [None]
  - ERYTHEMA [None]
  - SKIN EXFOLIATION [None]
  - EYE PRURITUS [None]
  - SKIN DISCOLOURATION [None]
